FAERS Safety Report 22012309 (Version 1)
Quarter: 2023Q1

REPORT INFORMATION
  Report Type: Spontaneous
  Country: US (occurrence: US)
  Receive Date: 20230220
  Receipt Date: 20230220
  Transmission Date: 20230418
  Serious: Yes (Other)
  Sender: FDA-Public Use
  Company Number: US-BAXTER-2023BAX013048

PATIENT
  Age: 33 Year
  Sex: Female

DRUGS (8)
  1. DOXORUBICIN [Suspect]
     Active Substance: DOXORUBICIN
     Indication: Hodgkin^s disease
     Dosage: ABVD, CYCLE 1
     Route: 065
  2. DOXORUBICIN [Suspect]
     Active Substance: DOXORUBICIN
     Dosage: DOSE REDUCED FOR CYCLE 2
     Route: 065
  3. BLEOMYCIN [Suspect]
     Active Substance: BLEOMYCIN SULFATE
     Indication: Hodgkin^s disease
     Dosage: ABVD CYCLE 1
     Route: 065
  4. BLEOMYCIN [Suspect]
     Active Substance: BLEOMYCIN SULFATE
     Dosage: DOSE REDUCED FOR CYCLE 2
     Route: 065
  5. VINBLASTINE [Suspect]
     Active Substance: VINBLASTINE
     Indication: Hodgkin^s disease
     Dosage: ABVD CYCLE 1
     Route: 065
  6. VINBLASTINE [Suspect]
     Active Substance: VINBLASTINE
     Dosage: DOSE REDUCED FOR CYCLE 2
     Route: 065
  7. DACARBAZINE [Suspect]
     Active Substance: DACARBAZINE
     Indication: Hodgkin^s disease
     Dosage: ABVD CYCLE 1
     Route: 065
  8. DACARBAZINE [Suspect]
     Active Substance: DACARBAZINE
     Dosage: DOSE REDUCED FOR CYCLE 2
     Route: 065

REACTIONS (2)
  - Drug-induced liver injury [Unknown]
  - Hypertransaminasaemia [Unknown]
